FAERS Safety Report 25037965 (Version 6)
Quarter: 2025Q2

REPORT INFORMATION
  Report Type: Report from Study
  Country: US (occurrence: US)
  Receive Date: 20250304
  Receipt Date: 20250418
  Transmission Date: 20250717
  Serious: Yes (Hospitalization, Other)
  Sender: UCB
  Company Number: US-UCBSA-2023041758

PATIENT
  Age: 14 Year
  Sex: Female
  Weight: 46.5 kg

DRUGS (15)
  1. FINTEPLA [Suspect]
     Active Substance: FENFLURAMINE
     Indication: Epilepsy
     Dosage: 5.8 MILLILITER, 2X/DAY (BID)
     Dates: start: 20200909
  2. FINTEPLA [Suspect]
     Active Substance: FENFLURAMINE
     Indication: Off label use
     Dosage: 5.8 MILLILITER, 2X/DAY (BID)
  3. FINTEPLA [Suspect]
     Active Substance: FENFLURAMINE
     Dosage: 4.2 MILLILITER, 2X/DAY (BID)
  4. FINTEPLA [Suspect]
     Active Substance: FENFLURAMINE
     Dosage: 3.2 MILLILITER, 2X/DAY (BID)
  5. FINTEPLA [Suspect]
     Active Substance: FENFLURAMINE
     Dosage: 4.2 MILLILITER, 2X/DAY (BID)
  6. FINTEPLA [Suspect]
     Active Substance: FENFLURAMINE
     Dosage: 4.6 MILLILITER, 2X/DAY (BID)
  7. FINTEPLA [Suspect]
     Active Substance: FENFLURAMINE
     Dosage: 4.2 MILLILITER, 2X/DAY (BID)
  8. FINTEPLA [Suspect]
     Active Substance: FENFLURAMINE
     Dosage: 4.2 MILLILITER, 2X/DAY (BID)
  9. FINTEPLA [Suspect]
     Active Substance: FENFLURAMINE
  10. FINTEPLA [Suspect]
     Active Substance: FENFLURAMINE
     Dosage: 4.2 MILLILITER, 2X/DAY (BID)
  11. FINTEPLA [Suspect]
     Active Substance: FENFLURAMINE
     Dosage: 4.2 MILLILITER, 2X/DAY (BID)
  12. FINTEPLA [Suspect]
     Active Substance: FENFLURAMINE
     Dosage: 6.3 MILLILITER, 2X/DAY (BID)
  13. VALIUM [Concomitant]
     Active Substance: DIAZEPAM
     Indication: Product used for unknown indication
  14. EVEROLIMUS [Concomitant]
     Active Substance: EVEROLIMUS
     Indication: Renal neoplasm
  15. SIROLIMUS [Concomitant]
     Active Substance: SIROLIMUS
     Indication: Renal neoplasm

REACTIONS (19)
  - Seizure [Not Recovered/Not Resolved]
  - Tuberous sclerosis complex [Not Recovered/Not Resolved]
  - Renal surgery [Not Recovered/Not Resolved]
  - Generalised tonic-clonic seizure [Unknown]
  - Therapeutic embolisation [Not Recovered/Not Resolved]
  - Ileus [Not Recovered/Not Resolved]
  - Kidney ablation [Not Recovered/Not Resolved]
  - Folliculitis [Recovered/Resolved]
  - Sinusitis [Not Recovered/Not Resolved]
  - Renal perivascular epithelioid cell tumour [Not Recovered/Not Resolved]
  - Haemorrhage [Unknown]
  - Fatigue [Not Recovered/Not Resolved]
  - Somnolence [Not Recovered/Not Resolved]
  - Rhabdomyoma [Unknown]
  - Salivary hypersecretion [Unknown]
  - Medical device battery replacement [Unknown]
  - Stomatitis [Unknown]
  - Gastrostomy [Unknown]
  - Off label use [Unknown]

NARRATIVE: CASE EVENT DATE: 20200909
